FAERS Safety Report 20365303 (Version 2)
Quarter: 2022Q1

REPORT INFORMATION
  Report Type: Spontaneous
  Country: JM (occurrence: JM)
  Receive Date: 20220122
  Receipt Date: 20220325
  Transmission Date: 20220424
  Serious: Yes (Death, Hospitalization, Other)
  Sender: FDA-Public Use
  Company Number: JM-NOVARTISPH-NVSC2022JM013546

PATIENT
  Sex: Male
  Weight: 66 kg

DRUGS (1)
  1. GLIVEC [Suspect]
     Active Substance: IMATINIB MESYLATE
     Indication: Gastrointestinal stromal tumour
     Dosage: 400 MG, QD (4 X 100 MG TABLETS)
     Route: 048

REACTIONS (6)
  - Rectal adenocarcinoma [Fatal]
  - Ascites [Unknown]
  - Metastases to peritoneum [Unknown]
  - Gastrointestinal stromal tumour [Unknown]
  - Malignant neoplasm progression [Unknown]
  - Pleural effusion [Unknown]
